FAERS Safety Report 4280226-0 (Version None)
Quarter: 2004Q1

REPORT INFORMATION
  Report Type: 
  Country: None (occurrence: None)
  Receive Date: 20040126
  Receipt Date: 20040112
  Transmission Date: 20041129
  Serious: Yes (Hospitalization, Other)
  Sender: FDA-Public Use
  Company Number: 2004002059

PATIENT
  Age: 60 Year
  Sex: Female
  Weight: 59.8748 kg

DRUGS (10)
  1. DOXEPIN HCL [Suspect]
     Indication: SLEEP DISORDER
     Dosage: 300 MG (DAILY), ORAL
     Route: 048
  2. NEURONTIN [Suspect]
     Indication: PAIN
     Dosage: 900 MG (DAILY), ORAL
     Route: 048
     Dates: start: 20000101, end: 20020901
  3. LEVOTHYROXINE SODIUM (LEVOHYROXINE SODIUM) [Concomitant]
  4. OMEPRAZOLE [Concomitant]
  5. VERAPAMIL HCL [Concomitant]
  6. TEMAZEPAM [Concomitant]
  7. BACLOFEN [Concomitant]
  8. CARISOPRODOL [Concomitant]
  9. PARAFON FORTE (CHLORZOXAZONE, PARACETAMOL) [Concomitant]
  10. HYDROXYZINE EMBONATE (HYDROXYZINE EMBONATE) [Concomitant]

REACTIONS (8)
  - ACCIDENTAL OVERDOSE [None]
  - COMA [None]
  - DYSKINESIA [None]
  - ELECTROENCEPHALOGRAM ABNORMAL [None]
  - EPILEPSY [None]
  - FACIAL BONES FRACTURE [None]
  - FALL [None]
  - LIMB OPERATION [None]
